FAERS Safety Report 14380918 (Version 5)
Quarter: 2018Q2

REPORT INFORMATION
  Report Type: Spontaneous
  Country: US (occurrence: US)
  Receive Date: 20180112
  Receipt Date: 20180515
  Transmission Date: 20180711
  Serious: Yes (Hospitalization)
  Sender: FDA-Public Use
  Company Number: US-ALKERMES INC.-ALK-2017-005147

PATIENT
  Age: 70 Year
  Sex: Female

DRUGS (1)
  1. ARISTADA [Suspect]
     Active Substance: ARIPIPRAZOLE LAUROXIL
     Indication: SCHIZOAFFECTIVE DISORDER
     Dosage: 882 MG, QMO
     Route: 030

REACTIONS (9)
  - Delusional disorder, grandiose type [Unknown]
  - Drug ineffective [Not Recovered/Not Resolved]
  - Hypomania [Unknown]
  - Psychiatric decompensation [Unknown]
  - Off label use [Not Recovered/Not Resolved]
  - Agitation [Unknown]
  - Logorrhoea [Unknown]
  - Aggression [Unknown]
  - Psychotic disorder [Not Recovered/Not Resolved]

NARRATIVE: CASE EVENT DATE: 20171016
